FAERS Safety Report 7003435-6 (Version None)
Quarter: 2010Q3

REPORT INFORMATION
  Report Type: 
  Country: None (occurrence: None)
  Receive Date: 20100920
  Receipt Date: 20100823
  Transmission Date: 20110219
  Serious: No
  Sender: FDA-Public Use
  Company Number: US-PFIZER INC-2010107566

PATIENT
  Sex: Female
  Weight: 68.027 kg

DRUGS (1)
  1. OGEN [Suspect]
     Indication: HORMONE REPLACEMENT THERAPY
     Dosage: 0.625 MG, ONCE A DAY FOR FIVE DAYS A WEEK
     Route: 048
     Dates: start: 19920101

REACTIONS (1)
  - TENSION [None]
